FAERS Safety Report 7741084-2 (Version None)
Quarter: 2011Q3

REPORT INFORMATION
  Report Type: 
  Country: None (occurrence: None)
  Receive Date: 20110909
  Receipt Date: 20110826
  Transmission Date: 20111222
  Serious: Yes (Other)
  Sender: FDA-Public Use
  Company Number: US-MUTUAL PHARMACEUTICAL COMPANY, INC.-ATEN20110001

PATIENT
  Sex: Female
  Weight: 115.77 kg

DRUGS (27)
  1. VITAMIN D 50,000 UNIT [Concomitant]
     Indication: VITAMIN D DEFICIENCY
     Route: 065
  2. DIPHENHYDRAMINE HCL [Concomitant]
     Indication: INSOMNIA
     Route: 065
  3. FUROSEMIDE [Concomitant]
     Indication: CORONARY ARTERY DISEASE
  4. ASPIRIN [Concomitant]
     Indication: PROPHYLAXIS
     Route: 048
  5. HYDROCHLOROTHIAZIDE [Concomitant]
     Indication: HYPERTENSION
     Route: 048
  6. ATENOLOL [Suspect]
     Indication: HYPERTENSION
  7. PREDNISONE [Suspect]
     Route: 048
  8. PREDNISONE [Suspect]
     Route: 048
  9. SIMVASTATIN [Concomitant]
     Indication: HYPERLIPIDAEMIA
     Route: 048
  10. CLONAZEPAM [Concomitant]
     Indication: RESTLESS LEGS SYNDROME
     Route: 048
     Dates: end: 20070822
  11. CLONAZEPAM [Concomitant]
     Indication: INSOMNIA
     Route: 048
     Dates: start: 20091029
  12. PERCOCET [Concomitant]
     Indication: PAIN
     Route: 048
  13. FUROSEMIDE [Concomitant]
     Indication: OEDEMA PERIPHERAL
     Route: 048
     Dates: end: 20091029
  14. FUROSEMIDE [Concomitant]
     Indication: HYPERTENSION
  15. ATENOLOL [Suspect]
     Indication: CORONARY ARTERY DISEASE
     Route: 048
     Dates: start: 20070418, end: 20100101
  16. PREDNISONE [Suspect]
     Indication: ARTHROPATHY
     Route: 048
  17. PREDNISONE [Suspect]
     Route: 048
  18. TERAZOSIN HCL [Concomitant]
     Indication: HYPERTENSION
     Route: 048
     Dates: start: 20090602
  19. MIRAPEX [Concomitant]
     Indication: RESTLESS LEGS SYNDROME
     Route: 048
     Dates: start: 20090101, end: 20091029
  20. COZAAR [Concomitant]
     Indication: HYPERTENSION
     Route: 048
     Dates: end: 20090602
  21. QVAR 40 [Concomitant]
     Indication: ASTHMA
  22. ETODOLAC [Concomitant]
     Indication: ARTHRITIS
     Route: 065
  23. VICODIN [Concomitant]
     Indication: PAIN
     Route: 048
  24. PRILOSEC [Concomitant]
     Indication: PROPHYLAXIS
     Route: 048
  25. PROAIR HFA [Concomitant]
     Indication: ASTHMA
  26. COZAAR [Concomitant]
     Indication: CORONARY ARTERY DISEASE
  27. FEXOFENADINE [Concomitant]
     Indication: HYPERSENSITIVITY
     Route: 048

REACTIONS (37)
  - ATRIOVENTRICULAR BLOCK COMPLETE [None]
  - DYSURIA [None]
  - URINE ODOUR ABNORMAL [None]
  - MUSCULOSKELETAL STIFFNESS [None]
  - CONVULSION [None]
  - OTITIS MEDIA ACUTE [None]
  - BUNDLE BRANCH BLOCK LEFT [None]
  - PNEUMONIA [None]
  - MUSCLE SWELLING [None]
  - POLLAKIURIA [None]
  - NECK PAIN [None]
  - FATIGUE [None]
  - DIZZINESS [None]
  - BRADYCARDIA [None]
  - FALL [None]
  - DYSARTHRIA [None]
  - DYSPNOEA [None]
  - SYNCOPE [None]
  - VERTIGO [None]
  - CHRONOTROPIC INCOMPETENCE [None]
  - TENDONITIS [None]
  - BACK PAIN [None]
  - DIARRHOEA [None]
  - CHEST PAIN [None]
  - ASTHENIA [None]
  - THINKING ABNORMAL [None]
  - CHROMATURIA [None]
  - PLANTAR FASCIITIS [None]
  - PAIN IN EXTREMITY [None]
  - EAR PAIN [None]
  - HEART RATE IRREGULAR [None]
  - HEADACHE [None]
  - LOSS OF CONSCIOUSNESS [None]
  - SICK SINUS SYNDROME [None]
  - DYSKINESIA [None]
  - ABDOMINAL PAIN UPPER [None]
  - RASH PAPULAR [None]
